FAERS Safety Report 21676280 (Version 5)
Quarter: 2023Q2

REPORT INFORMATION
  Report Type: Report from Study
  Country: CL (occurrence: CL)
  Receive Date: 20221202
  Receipt Date: 20230606
  Transmission Date: 20230722
  Serious: Yes (Life-Threatening, Hospitalization, Other)
  Sender: FDA-Public Use
  Company Number: CL-BRISTOL-MYERS SQUIBB COMPANY-2022-124488

PATIENT
  Age: 72 Year
  Sex: Male
  Weight: 80 kg

DRUGS (22)
  1. NIVOLUMAB [Suspect]
     Active Substance: NIVOLUMAB
     Indication: Hormone-refractory prostate cancer
     Dosage: PRIOR TO THE ONSET OF THE EVENTS, THE PATIENT RECEIVED MOST RECENT DOSE OF STUDY THERAPY ON 29-SEP-2
     Route: 042
     Dates: start: 20220714, end: 20220929
  2. PREDNISONE [Concomitant]
     Active Substance: PREDNISONE
     Indication: Diarrhoea
     Route: 048
     Dates: start: 20221013, end: 20221020
  3. LOPERAMIDE [Concomitant]
     Active Substance: LOPERAMIDE
     Indication: Diarrhoea
     Route: 048
     Dates: start: 20220804
  4. CELECOXIB [Concomitant]
     Active Substance: CELECOXIB
     Indication: Myalgia
     Route: 048
     Dates: start: 20220810
  5. POTASSIUM CHLORIDE [Concomitant]
     Active Substance: POTASSIUM CHLORIDE
     Indication: Hypokalaemia
     Route: 048
     Dates: start: 20221006
  6. POTASSIUM CHLORIDE [Concomitant]
     Active Substance: POTASSIUM CHLORIDE
     Indication: Blood potassium decreased
     Route: 042
     Dates: start: 20221014, end: 20221014
  7. POTASSIUM CHLORIDE [Concomitant]
     Active Substance: POTASSIUM CHLORIDE
     Route: 042
     Dates: start: 20221018, end: 20221018
  8. SACCHAROMYCES CEREVISIAE [Concomitant]
     Active Substance: SACCHAROMYCES CEREVISIAE
     Indication: Diarrhoea
     Dosage: DOSE: 2 UNITS NOS
     Route: 048
     Dates: start: 20221006
  9. ONDANSETRON [Concomitant]
     Active Substance: ONDANSETRON
     Indication: Nausea
     Route: 042
     Dates: start: 20221013, end: 20221013
  10. ONDANSETRON [Concomitant]
     Active Substance: ONDANSETRON
     Route: 048
     Dates: start: 20221013
  11. GONADORELIN [Concomitant]
     Active Substance: GONADORELIN
     Indication: Product used for unknown indication
     Route: 030
     Dates: start: 2015
  12. UREA [Concomitant]
     Active Substance: UREA
     Indication: Xerosis
     Dosage: DOSE: 2 UNITS NOS
     Route: 061
     Dates: start: 20220907
  13. SODIUM CHLORIDE [Concomitant]
     Active Substance: SODIUM CHLORIDE
     Indication: Diarrhoea
     Dosage: DOSE: 1000 UNITS NOS
     Route: 042
     Dates: start: 20221013, end: 20221013
  14. SODIUM CHLORIDE [Concomitant]
     Active Substance: SODIUM CHLORIDE
     Indication: Blood potassium decreased
     Dosage: DOSE: 1000 UNITS NOS
     Route: 042
     Dates: start: 20221014, end: 20221014
  15. SODIUM CHLORIDE [Concomitant]
     Active Substance: SODIUM CHLORIDE
     Dosage: DOSE: 1 UNIT NOS
     Route: 042
     Dates: start: 20221018, end: 20221018
  16. VITAMIN B12 [Concomitant]
     Active Substance: CYANOCOBALAMIN
     Indication: Immune-mediated enterocolitis
     Dosage: DOSE: 1 UNIT NOS
     Route: 048
     Dates: start: 20220123
  17. AMIODARONE [Concomitant]
     Active Substance: AMIODARONE
     Indication: Atrial fibrillation
     Route: 042
     Dates: start: 20221110, end: 20221111
  18. CARVEDILOL [Concomitant]
     Active Substance: CARVEDILOL
     Indication: Atrial fibrillation
     Route: 048
     Dates: start: 20221110
  19. ENOXAPARIN [Concomitant]
     Active Substance: ENOXAPARIN
     Indication: Atrial fibrillation
     Route: 058
     Dates: start: 20221110, end: 20221111
  20. PLATELETS [Concomitant]
     Active Substance: HUMAN PLATELET, ALLOGENIC
     Indication: Anaemia
     Dosage: DOSE: 4 UNITS NOS
     Route: 042
     Dates: start: 20221111, end: 20221111
  21. PLATELETS [Concomitant]
     Active Substance: HUMAN PLATELET, ALLOGENIC
     Indication: Thrombocytopenia
     Dosage: DOSE: 7 UNITS
     Route: 042
     Dates: start: 20221116, end: 20221116
  22. HUMAN RED BLOOD CELL [Concomitant]
     Active Substance: HUMAN RED BLOOD CELL
     Indication: Anaemia
     Dosage: DOSE: 2 UNITS NOS
     Route: 042
     Dates: start: 20221111, end: 20221111

REACTIONS (5)
  - Autoimmune colitis [Recovered/Resolved]
  - Malnutrition [Recovered/Resolved]
  - Staphylococcal bacteraemia [Recovered/Resolved]
  - Cholecystitis acute [Recovered/Resolved]
  - Respiratory distress [Recovered/Resolved]

NARRATIVE: CASE EVENT DATE: 20221019
